FAERS Safety Report 9664164 (Version 1)
Quarter: 2013Q4

REPORT INFORMATION
  Report Type: Spontaneous
  Country: US (occurrence: US)
  Receive Date: 20131101
  Receipt Date: 20131101
  Transmission Date: 20140711
  Serious: No
  Sender: FDA-Public Use
  Company Number: US-009507513-1310USA014663

PATIENT
  Age: 69 Year
  Sex: Female

DRUGS (2)
  1. COSOPT [Suspect]
     Indication: INTRAOCULAR PRESSURE INCREASED
     Dosage: 1 DROP IN EACH EYE ONCE DAILY IN MORNING
     Route: 047
     Dates: end: 2013
  2. ZIOPTAN [Concomitant]
     Dosage: IN THE EVENINGS

REACTIONS (4)
  - Deposit eye [Recovered/Resolved]
  - Hypersensitivity [Recovered/Resolved]
  - Ocular hyperaemia [Recovered/Resolved]
  - Eye pruritus [Recovered/Resolved]
